FAERS Safety Report 20307507 (Version 1)
Quarter: 2022Q1

REPORT INFORMATION
  Report Type: Report from Study
  Country: US (occurrence: PR)
  Receive Date: 20220107
  Receipt Date: 20220107
  Transmission Date: 20220423
  Serious: Yes (Hospitalization)
  Sender: FDA-Public Use
  Company Number: US-BRISTOL-MYERS SQUIBB COMPANY-BMS-2022-001286

PATIENT
  Age: 60 Year
  Sex: Female

DRUGS (1)
  1. APIXABAN [Suspect]
     Active Substance: APIXABAN
     Indication: Pulmonary embolism
     Dosage: 2.5 MILLIGRAM, BID
     Route: 048
     Dates: start: 20211201

REACTIONS (2)
  - Haemoglobin decreased [Unknown]
  - Prescribed underdose [Unknown]
